FAERS Safety Report 5116210-4 (Version None)
Quarter: 2006Q3

REPORT INFORMATION
  Report Type: 
  Country: None (occurrence: None)
  Receive Date: 20060927
  Receipt Date: 20060926
  Transmission Date: 20061208
  Serious: Yes (Other)
  Sender: FDA-Public Use
  Company Number: 200614856EU

PATIENT
  Age: 44 Year
  Sex: Male

DRUGS (5)
  1. NICORETTE [Suspect]
     Indication: SMOKING CESSATION THERAPY
     Dosage: 15GUM PER DAY
     Route: 002
     Dates: start: 19990101
  2. NICODERM [Suspect]
     Indication: SMOKING CESSATION THERAPY
     Route: 062
     Dates: end: 20050101
  3. RISPERIDONE [Concomitant]
     Indication: ANXIETY
     Route: 048
     Dates: start: 19860101
  4. ATORVASTATIN [Concomitant]
     Route: 048
     Dates: start: 20040101
  5. GLIBENCLAMIDE [Concomitant]
     Route: 048
     Dates: start: 20020101

REACTIONS (2)
  - NEOPLASM MALIGNANT [None]
  - OVERDOSE [None]
